FAERS Safety Report 18879080 (Version 2)
Quarter: 2021Q1

REPORT INFORMATION
  Report Type: Spontaneous
  Country: US (occurrence: US)
  Receive Date: 20210211
  Receipt Date: 20210312
  Transmission Date: 20210420
  Serious: No
  Sender: FDA-Public Use
  Company Number: US-PFIZER INC-2021123321

PATIENT
  Age: 62 Year
  Sex: Male

DRUGS (1)
  1. RUXIENCE [Suspect]
     Active Substance: RITUXIMAB-PVVR
     Indication: NEOPLASM MALIGNANT
     Dosage: UNK

REACTIONS (2)
  - Fatigue [Unknown]
  - Illness [Unknown]
